FAERS Safety Report 6471955-9 (Version None)
Quarter: 2009Q4

REPORT INFORMATION
  Report Type: 
  Country: None (occurrence: None)
  Receive Date: 20091203
  Receipt Date: 20080401
  Transmission Date: 20100525
  Serious: Yes (Hospitalization)
  Sender: FDA-Public Use
  Company Number: GB-ELI_LILLY_AND_COMPANY-GB200804000486

PATIENT
  Age: 80 Year
  Sex: Male

DRUGS (6)
  1. FLUOXETINE [Suspect]
     Indication: DEPRESSION
     Dosage: 20 MG, UNK
     Route: 048
  2. TRAMADOL HCL [Interacting]
     Indication: MUSCULOSKELETAL PAIN
     Dosage: 100 MG, 3/D
     Route: 048
     Dates: start: 20080310, end: 20080311
  3. BENDROFLUMETHIAZIDE [Concomitant]
     Indication: HYPERTENSION
     Dosage: 2.5 MG, DAILY (1/D)
     Route: 048
  4. PARACETAMOL [Concomitant]
     Indication: ANALGESIC THERAPY
     Dosage: 1 G, AS NEEDED
     Route: 048
  5. ZOPICLONE [Concomitant]
     Indication: SLEEP DISORDER
     Dosage: 7.5 MG, DAILY (1/D)
     Route: 048
  6. ALCOHOL [Concomitant]
     Dosage: UNK, EACH EVENING
     Dates: start: 20080310, end: 20080310

REACTIONS (4)
  - BALANCE DISORDER [None]
  - DRUG INTERACTION [None]
  - HALLUCINATIONS, MIXED [None]
  - TREMOR [None]
